FAERS Safety Report 7328421-8 (Version None)
Quarter: 2011Q1

REPORT INFORMATION
  Report Type: 
  Country: None (occurrence: None)
  Receive Date: 20110303
  Receipt Date: 20110225
  Transmission Date: 20110831
  Serious: No
  Sender: FDA-Public Use
  Company Number: JP-SANOFI-AVENTIS-2011SA005784

PATIENT
  Age: 62 Year
  Sex: Female
  Weight: 43 kg

DRUGS (6)
  1. SHAKUYAKUKANZOUTOU [Concomitant]
     Indication: DIABETIC NEUROPATHY
     Route: 048
     Dates: end: 20100701
  2. APIDRA [Suspect]
     Indication: DIABETES MELLITUS
     Dosage: DOSE:3 UNIT(S)
     Route: 058
     Dates: start: 20100619, end: 20100707
  3. LANTUS [Concomitant]
     Indication: DIABETES MELLITUS
     Dosage: 0-0-7 UNITS/DAY DOSE:7 UNIT(S)
     Route: 058
     Dates: end: 20100618
  4. ASPARA POTASSIUM [Concomitant]
     Route: 048
     Dates: start: 20100619
  5. LANTUS [Concomitant]
     Dosage: 2-0-7 UNITS/DAY
     Route: 058
     Dates: start: 20100619, end: 20100707
  6. LENDORMIN [Concomitant]
     Route: 048

REACTIONS (1)
  - DIABETES MELLITUS INADEQUATE CONTROL [None]
